FAERS Safety Report 25956457 (Version 2)
Quarter: 2025Q4

REPORT INFORMATION
  Report Type: Spontaneous
  Country: EU (occurrence: EU)
  Receive Date: 20251024
  Receipt Date: 20251101
  Transmission Date: 20260119
  Serious: Yes (Other)
  Sender: ACCORD
  Company Number: EU-Accord-508859

PATIENT
  Age: 82 Year
  Sex: Male

DRUGS (9)
  1. CARBOPLATIN [Suspect]
     Active Substance: CARBOPLATIN
     Indication: Lung neoplasm malignant
     Dosage: 30% OF DOSE HAD BEEN ADMINISTERED
     Dates: start: 20250805, end: 20250805
  2. PACLITAXEL [Suspect]
     Active Substance: PACLITAXEL
     Indication: Lung neoplasm malignant
     Dosage: 30% OF DOSE HAD BEEN ADMINISTERED
     Dates: start: 20250805, end: 20250805
  3. METFORMIN [Concomitant]
     Active Substance: METFORMIN HYDROCHLORIDE
     Indication: Diabetes mellitus
     Dosage: 3 TABLETS 750MG
  4. OZEMPIC [Concomitant]
     Active Substance: SEMAGLUTIDE
     Dosage: ONCE IN A WEEK
  5. ROSUVASTATIN [Concomitant]
     Active Substance: ROSUVASTATIN
     Dosage: 1 TIME DAILY
  6. Duadart [Concomitant]
  7. HYDREX SEMI [Concomitant]
  8. PLAVIX [Concomitant]
     Active Substance: CLOPIDOGREL BISULFATE
  9. FELODIPINE\METOPROLOL SUCCINATE [Concomitant]
     Active Substance: FELODIPINE\METOPROLOL SUCCINATE
     Indication: Blood pressure measurement
     Dosage: 5/47.5 MG X 1

REACTIONS (4)
  - Hypoaesthesia [Recovering/Resolving]
  - Arthralgia [Recovering/Resolving]
  - Blood pressure decreased [Recovering/Resolving]
  - Peripheral coldness [Unknown]

NARRATIVE: CASE EVENT DATE: 20250801
